FAERS Safety Report 8333894 (Version 2)
Quarter: 2013Q2

REPORT INFORMATION
  Report Type: Spontaneous
  Country: US (occurrence: None)
  Receive Date: 20111130
  Receipt Date: 20120731
  Transmission Date: 20140414
  Serious: Yes (Other)
  Sender: FDA-Public Use
  Company Number: US201107004554

PATIENT
  Age: 64 Year
  Sex: Female

DRUGS (11)
  1. BYETTA [Suspect]
     Dosage: UNK
     Route: 058
     Dates: start: 20070130, end: 20070924
  2. COREG (CARVEDILOL) [Concomitant]
  3. VYTORIN (EZETIMIBE, SIMVASTATIN) [Concomitant]
  4. LIPITOR (ATORVASTATIN CALCIUM) [Concomitant]
  5. GLIPIZIDE (GLIPIZIDE) [Concomitant]
  6. FISH OIL (FISH OIL) [Concomitant]
  7. LABETALOL HCL (LABETALOL HYDROCHLORIDE) [Concomitant]
  8. METOPROLOL TARTRATE (METOPROLOL TARTRATE) [Concomitant]
  9. CATAPRES   /00171101/ (CLONIDINE) [Concomitant]
  10. TRICOR (FENOFIBRATE) [Concomitant]
  11. ALLOPURINOL (ALLOPURINOL) [Concomitant]

REACTIONS (1)
  - RENAL FAILURE [None]
